FAERS Safety Report 8175362-2 (Version None)
Quarter: 2012Q1

REPORT INFORMATION
  Report Type: 
  Country: None (occurrence: None)
  Receive Date: 20120229
  Receipt Date: 20120223
  Transmission Date: 20120608
  Serious: Yes (Other)
  Sender: FDA-Public Use
  Company Number: CL-PFIZER INC-2012007219

PATIENT
  Age: 22 Year
  Sex: Female

DRUGS (1)
  1. MEDROXYPROGESTERONE ACETATE [Suspect]
     Indication: CONTRACEPTION
     Dosage: UNK
     Route: 058
     Dates: start: 20110601, end: 20110901

REACTIONS (3)
  - INJECTION SITE PAIN [None]
  - INJECTION SITE ATROPHY [None]
  - INJECTION SITE REACTION [None]
